FAERS Safety Report 18748579 (Version 1)
Quarter: 2021Q1

REPORT INFORMATION
  Report Type: Spontaneous
  Country: AT (occurrence: AT)
  Receive Date: 20210115
  Receipt Date: 20210115
  Transmission Date: 20210419
  Serious: Yes (Hospitalization, Other)
  Sender: FDA-Public Use
  Company Number: AT-PFIZER INC-2021019593

PATIENT
  Age: 42 Year
  Sex: Female

DRUGS (11)
  1. TEMESTA [LORAZEPAM] [Concomitant]
     Active Substance: LORAZEPAM
     Dosage: UNK
     Dates: start: 20201108, end: 20201117
  2. LORAZEPAM. [Suspect]
     Active Substance: LORAZEPAM
     Dosage: UNK
  3. SERTRALINE [Concomitant]
     Active Substance: SERTRALINE HYDROCHLORIDE
     Dosage: UNK
     Dates: start: 20201111, end: 20201117
  4. ABILIFY [Suspect]
     Active Substance: ARIPIPRAZOLE
     Dosage: 10 MG
     Dates: start: 20201112, end: 20201113
  5. TEMESTA [LORAZEPAM] [Concomitant]
     Active Substance: LORAZEPAM
     Dosage: UNK
     Dates: start: 20201121, end: 20201124
  6. SERTRALINE [Concomitant]
     Active Substance: SERTRALINE HYDROCHLORIDE
     Dosage: 25 MG, 1X/DAY (QD)
     Dates: start: 20201005, end: 20201108
  7. LORAZEPAM. [Suspect]
     Active Substance: LORAZEPAM
     Dosage: UNK
     Dates: start: 20201112
  8. RISPERIDONE. [Concomitant]
     Active Substance: RISPERIDONE
     Dates: start: 20201112
  9. TEMESTA [LORAZEPAM] [Concomitant]
     Active Substance: LORAZEPAM
     Dosage: UNK
     Dates: start: 20201117, end: 20201121
  10. ABILIFY [Suspect]
     Active Substance: ARIPIPRAZOLE
     Dosage: 5 MG
     Dates: start: 20201108, end: 20201112
  11. SERTRALINE [Concomitant]
     Active Substance: SERTRALINE HYDROCHLORIDE
     Dosage: UNK
     Dates: start: 20201117

REACTIONS (1)
  - Suicidal ideation [Recovering/Resolving]

NARRATIVE: CASE EVENT DATE: 202011
